FAERS Safety Report 7559236-3 (Version None)
Quarter: 2011Q2

REPORT INFORMATION
  Report Type: 
  Country: None (occurrence: None)
  Receive Date: 20110621
  Receipt Date: 20110607
  Transmission Date: 20111010
  Serious: Yes (Hospitalization, Other)
  Sender: FDA-Public Use
  Company Number: US-ELI_LILLY_AND_COMPANY-US201008001021

PATIENT
  Sex: Female

DRUGS (14)
  1. FORTEO [Suspect]
     Indication: OSTEOPOROSIS
     Dosage: 20 UG, DAILY (1/D)
     Route: 065
     Dates: start: 20100401, end: 20100101
  2. FORTEO [Suspect]
     Dosage: 20 UG, DAILY (1/D)
     Route: 065
  3. PLAVIX [Concomitant]
     Dosage: 75 UNK, UNK
  4. CELEBREX [Concomitant]
     Dosage: 200 MG, UNK
  5. FORTEO [Suspect]
     Dosage: 20 UG, DAILY (1/D)
     Route: 065
     Dates: start: 20100101, end: 20100601
  6. ASPIRIN [Concomitant]
     Dosage: 325 MG, UNK
  7. HYDROCHLOROTHIAZIDE [Concomitant]
     Dosage: 25 MG, UNK
  8. VITAMIN D [Concomitant]
     Dosage: UNK, 2/W
  9. FORTEO [Suspect]
     Dosage: 20 UG, DAILY (1/D)
     Route: 065
     Dates: start: 20100701
  10. VERPAMIL HCL [Concomitant]
     Dosage: 400 MG, UNK
  11. NITROGLYCERIN [Concomitant]
     Dosage: UNK, OTHER
  12. SERTRALINE HYDROCHLORIDE [Concomitant]
     Dosage: 100 MG, QD
  13. OMEPRAZOLE [Concomitant]
     Dosage: 20 MG, UNK
  14. SIMVASTATIN [Concomitant]
     Dosage: 40 MG, UNK

REACTIONS (5)
  - PAIN IN EXTREMITY [None]
  - FATIGUE [None]
  - CHEST PAIN [None]
  - CORONARY ARTERY OCCLUSION [None]
  - INSOMNIA [None]
